FAERS Safety Report 8270624-2 (Version None)
Quarter: 2012Q2

REPORT INFORMATION
  Report Type: 
  Country: None (occurrence: None)
  Receive Date: 20120405
  Receipt Date: 20120322
  Transmission Date: 20120825
  Serious: Yes (Hospitalization)
  Sender: FDA-Public Use
  Company Number: 2012MA004045

PATIENT
  Age: 43 Year
  Sex: Male

DRUGS (3)
  1. SERTRALINE HYDROCHLORIDE [Suspect]
     Indication: DEPRESSION
     Dosage: 50 MG;PO
     Route: 048
     Dates: start: 20120227, end: 20120311
  2. METFORMIN HCL [Concomitant]
  3. GLICLAZIDE [Concomitant]

REACTIONS (2)
  - GRAND MAL CONVULSION [None]
  - VISION BLURRED [None]
